FAERS Safety Report 8464219 (Version 3)
Quarter: 2012Q4

REPORT INFORMATION
  Report Type: 
  Country: US (occurrence: US)
  Receive Date: 20120316
  Receipt Date: 20121101
  Transmission Date: 20130627
  Serious: Yes (Other)
  Sender: FDA-Public Use
  Company Number: US-ROCHE-1046566

PATIENT
  Sex: Male

DRUGS (1)
  1. AVASTIN [Suspect]
     Indication: AGE-RELATED MACULAR DEGENERATION
     Route: 050
     Dates: start: 20110705

REACTIONS (4)
  - Endophthalmitis [Unknown]
  - Choroidal detachment [Unknown]
  - Hypotony of eye [Unknown]
  - Blindness unilateral [Unknown]
